FAERS Safety Report 5831289-X (Version None)
Quarter: 2008Q3

REPORT INFORMATION
  Report Type: 
  Country: None (occurrence: None)
  Receive Date: 20080801
  Receipt Date: 20080729
  Transmission Date: 20090109
  Serious: No
  Sender: FDA-Public Use
  Company Number: US-BOEHRINGER INGELHEIM GMBH, GERMANY-2008-BP-11972BP

PATIENT
  Sex: Male

DRUGS (4)
  1. SPIRIVA [Suspect]
     Indication: CHRONIC OBSTRUCTIVE PULMONARY DISEASE
     Route: 055
     Dates: start: 20080501
  2. CLARITIN [Concomitant]
     Indication: HYPERSENSITIVITY
     Route: 048
     Dates: start: 20040601
  3. PRAZOSIN HCL [Concomitant]
     Indication: PROSTATOMEGALY
     Route: 048
     Dates: start: 20060601
  4. GUAIFENESIN [Concomitant]
     Indication: COUGH
     Dosage: 6 TO 12 MG
     Route: 048
     Dates: start: 20070601

REACTIONS (2)
  - COUGH [None]
  - THERAPEUTIC RESPONSE UNEXPECTED [None]
